FAERS Safety Report 6962074-3 (Version None)
Quarter: 2010Q3

REPORT INFORMATION
  Report Type: 
  Country: None (occurrence: None)
  Receive Date: 20100901
  Receipt Date: 20100901
  Transmission Date: 20110219
  Serious: Yes (Disabling)
  Sender: FDA-Public Use
  Company Number: None

PATIENT
  Sex: Female
  Weight: 53.5244 kg

DRUGS (1)
  1. LIALDA [Suspect]
     Indication: GASTROINTESTINAL INFLAMMATION
     Dosage: 2 TABLETS DAILY PO
     Route: 048
     Dates: start: 20100804, end: 20100831

REACTIONS (1)
  - ABDOMINAL PAIN [None]
